FAERS Safety Report 7152887-X (Version None)
Quarter: 2010Q4

REPORT INFORMATION
  Report Type: 
  Country: None (occurrence: None)
  Receive Date: 20101209
  Receipt Date: 20101209
  Transmission Date: 20110411
  Serious: No
  Sender: FDA-Public Use
  Company Number: None

PATIENT
  Age: 79 Year
  Sex: Female
  Weight: 49.8957 kg

DRUGS (3)
  1. AVELOX [Suspect]
     Indication: DYSPHONIA
     Dosage: 400 MG 1 A DAY ORALLY
     Route: 048
     Dates: start: 20101115, end: 20101121
  2. AVELOX [Suspect]
     Indication: INFECTION
     Dosage: 400 MG 1 A DAY ORALLY
     Route: 048
     Dates: start: 20101115, end: 20101121
  3. AVELOX [Suspect]
     Indication: NASOPHARYNGITIS
     Dosage: 400 MG 1 A DAY ORALLY
     Route: 048
     Dates: start: 20101115, end: 20101121

REACTIONS (4)
  - ABASIA [None]
  - GROIN PAIN [None]
  - MIDDLE INSOMNIA [None]
  - PAIN IN EXTREMITY [None]
